FAERS Safety Report 6256059-2 (Version None)
Quarter: 2009Q2

REPORT INFORMATION
  Report Type: 
  Country: None (occurrence: None)
  Receive Date: 20090630
  Receipt Date: 20090630
  Transmission Date: 20091009
  Serious: Yes (Other)
  Sender: FDA-Public Use
  Company Number: None

PATIENT
  Age: 73 Year
  Sex: Female
  Weight: 61.6892 kg

DRUGS (1)
  1. TOPROL-XL [Suspect]
     Indication: SYNCOPE
     Dosage: ONE TABLET ONCE A DAY PO
     Route: 048
     Dates: start: 20090620, end: 20090620

REACTIONS (4)
  - ACTIVITIES OF DAILY LIVING IMPAIRED [None]
  - FEELING ABNORMAL [None]
  - FEELING HOT [None]
  - MALAISE [None]
